FAERS Safety Report 6584829-X (Version None)
Quarter: 2010Q1

REPORT INFORMATION
  Report Type: 
  Country: None (occurrence: None)
  Receive Date: 20100217
  Receipt Date: 20090402
  Transmission Date: 20100710
  Serious: Yes (Other)
  Sender: FDA-Public Use
  Company Number: PHEH2009US03542

PATIENT
  Sex: Female

DRUGS (1)
  1. ZOMETA [Suspect]
     Indication: BREAST CANCER METASTATIC
     Dosage: UNK
     Dates: start: 20030101, end: 20071001

REACTIONS (4)
  - BONE DISORDER [None]
  - BONE PAIN [None]
  - GINGIVAL DISORDER [None]
  - TOOTH DISORDER [None]
